FAERS Safety Report 7632291-8 (Version None)
Quarter: 2011Q3

REPORT INFORMATION
  Report Type: 
  Country: None (occurrence: None)
  Receive Date: 20110725
  Receipt Date: 20100802
  Transmission Date: 20111222
  Serious: No
  Sender: FDA-Public Use
  Company Number: US-BRISTOL-MYERS SQUIBB COMPANY-15194798

PATIENT
  Age: 69 Year
  Sex: Male

DRUGS (1)
  1. COUMADIN [Suspect]
     Indication: THROMBOSIS
     Dosage: 1 DF= 10MG,5 DAYS A WEEK AND 7.5MG,2 DAYS A WEEK
     Dates: start: 20100301

REACTIONS (1)
  - BREATH ALCOHOL TEST POSITIVE [None]
